FAERS Safety Report 4407632-5 (Version None)
Quarter: 2004Q3

REPORT INFORMATION
  Report Type: 
  Country: None (occurrence: None)
  Receive Date: 20040721
  Receipt Date: 20040628
  Transmission Date: 20050211
  Serious: Yes (Hospitalization)
  Sender: FDA-Public Use
  Company Number: 2004IC000306

PATIENT
  Age: 67 Year
  Sex: Male

DRUGS (5)
  1. LIBRIUM [Suspect]
     Indication: ALCOHOL WITHDRAWAL SYNDROME
     Dosage: SEE IMAGE
     Route: 042
  2. FOLIC ACID [Suspect]
     Indication: ALCOHOL WITHDRAWAL SYNDROME
     Dosage: 1 MG; DAILY
  3. THIAMINE [Suspect]
     Indication: ALCOHOL WITHDRAWAL SYNDROME
     Dosage: 100 MG; DAILY
  4. RAMIPRIL [Concomitant]
  5. DIGOXIN [Concomitant]

REACTIONS (26)
  - ALANINE AMINOTRANSFERASE INCREASED [None]
  - ALCOHOL USE [None]
  - ALCOHOL WITHDRAWAL SYNDROME [None]
  - ARRHYTHMIA [None]
  - ASPARTATE AMINOTRANSFERASE INCREASED [None]
  - ATRIAL FIBRILLATION [None]
  - BLOOD ALKALINE PHOSPHATASE INCREASED [None]
  - BLOOD SODIUM DECREASED [None]
  - CARDIAC FLUTTER [None]
  - CEREBELLAR ATROPHY [None]
  - CEREBRAL ATROPHY [None]
  - CHEST PAIN [None]
  - COMA [None]
  - DEPRESSED LEVEL OF CONSCIOUSNESS [None]
  - EFFUSION [None]
  - ENCEPHALOPATHY [None]
  - GAMMA-GLUTAMYLTRANSFERASE INCREASED [None]
  - GRIMACING [None]
  - LETHARGY [None]
  - LIVER DISORDER [None]
  - PNEUMONIA ASPIRATION [None]
  - RESPIRATORY DEPRESSION [None]
  - RESPIRATORY FAILURE [None]
  - SEPSIS [None]
  - SOMNOLENCE [None]
  - THERAPEUTIC AGENT TOXICITY [None]
